FAERS Safety Report 9156902 (Version 1)
Quarter: 2013Q1

REPORT INFORMATION
  Report Type: Spontaneous
  Country: AT (occurrence: AT)
  Receive Date: 20130312
  Receipt Date: 20130312
  Transmission Date: 20140127
  Serious: Yes (Hospitalization, Other)
  Sender: FDA-Public Use
  Company Number: PHHY2013AT022999

PATIENT
  Sex: Male

DRUGS (2)
  1. EXELON PATCH [Suspect]
     Dosage: UNK UKN, UNK
     Route: 062
  2. EXELON PATCH [Suspect]
     Dosage: 6 DF, ONCE/SINGLE
     Route: 062

REACTIONS (3)
  - Muscle spasms [Recovered/Resolved]
  - Urinary retention [Recovered/Resolved]
  - Overdose [Recovered/Resolved]
